FAERS Safety Report 7559792-5 (Version None)
Quarter: 2011Q2

REPORT INFORMATION
  Report Type: 
  Country: None (occurrence: None)
  Receive Date: 20110617
  Receipt Date: 20110617
  Transmission Date: 20111010
  Serious: Yes (Other)
  Sender: FDA-Public Use
  Company Number: None

PATIENT
  Sex: Male
  Weight: 78.9259 kg

DRUGS (1)
  1. ACTOS [Suspect]
     Dosage: 1 3 TIMES PO
     Route: 048
     Dates: start: 19990101, end: 20050101

REACTIONS (10)
  - BLADDER DISORDER [None]
  - EPISTAXIS [None]
  - APTYALISM [None]
  - PAIN [None]
  - RADIATION INJURY [None]
  - ARTERIOSCLEROSIS [None]
  - SLEEP DISORDER [None]
  - HEAD AND NECK CANCER [None]
  - DEAFNESS [None]
  - RENAL FAILURE [None]
